FAERS Safety Report 7889359-0 (Version None)
Quarter: 2011Q4

REPORT INFORMATION
  Report Type: 
  Country: None (occurrence: None)
  Receive Date: 20111103
  Receipt Date: 20111026
  Transmission Date: 20120403
  Serious: Yes (Hospitalization)
  Sender: FDA-Public Use
  Company Number: FR-TEVA-307039ISR

PATIENT
  Sex: Female

DRUGS (1)
  1. FLURBIPROFEN [Suspect]
     Indication: DYSMENORRHOEA
     Route: 048
     Dates: start: 20100101, end: 20110312

REACTIONS (2)
  - ABDOMINAL PAIN UPPER [None]
  - RENAL TUBULAR NECROSIS [None]
